FAERS Safety Report 6469362-8 (Version None)
Quarter: 2009Q4

REPORT INFORMATION
  Report Type: 
  Country: None (occurrence: None)
  Receive Date: 20091203
  Receipt Date: 20080808
  Transmission Date: 20100525
  Serious: Yes (Other)
  Sender: FDA-Public Use
  Company Number: US-ELI_LILLY_AND_COMPANY-US200710000645

PATIENT
  Sex: Male

DRUGS (13)
  1. CIALIS [Suspect]
     Indication: ERECTILE DYSFUNCTION
     Dosage: 10 MG, OTHER
     Dates: start: 20050901, end: 20050101
  2. LIPITOR [Concomitant]
     Dosage: 10 MG, DAILY (1/D)
  3. LIPITOR [Concomitant]
     Dosage: 20 MG, UNK
  4. LIPITOR [Concomitant]
     Dosage: 40 MG, UNK
  5. NORVASC [Concomitant]
     Dosage: 5 MG, DAILY (1/D)
  6. ASPIRIN /USA/ [Concomitant]
     Dosage: 1 D/F, DAILY (1/D)
  7. NAPROXEN [Concomitant]
     Dosage: 500 MG, DAILY (1/D)
  8. VITAMIN B-12 [Concomitant]
     Dosage: 100 MG, DAILY (1/D)
  9. PHENYTOIN [Concomitant]
     Dosage: 300 MG, EACH EVENING
  10. MIRAPEX [Concomitant]
     Dosage: 0.5 MG, EACH EVENING
  11. DIAZEPAM [Concomitant]
     Dosage: 5 MG, EACH EVENING
  12. TRAMADOL HCL [Concomitant]
     Indication: PAIN
     Dosage: UNK, AS NEEDED
  13. VYTORIN [Concomitant]

REACTIONS (6)
  - FATIGUE [None]
  - GAIT DISTURBANCE [None]
  - HEADACHE [None]
  - OPTIC NEUROPATHY [None]
  - VISUAL ACUITY REDUCED [None]
  - VISUAL IMPAIRMENT [None]
